FAERS Safety Report 8173689-1 (Version None)
Quarter: 2012Q1

REPORT INFORMATION
  Report Type: 
  Country: None (occurrence: None)
  Receive Date: 20120224
  Receipt Date: 20120216
  Transmission Date: 20120608
  Serious: Yes (Other)
  Sender: FDA-Public Use
  Company Number: 1000028503

PATIENT
  Age: 53 Year
  Sex: Female

DRUGS (2)
  1. BYSTOLIC [Suspect]
     Dosage: 10 MG (10 MG, 1 IN 1 D), ORAL
     Route: 048
  2. ALCOHOL (ETHANOL) [Suspect]

REACTIONS (4)
  - FALL [None]
  - ROTATOR CUFF SYNDROME [None]
  - LOSS OF CONSCIOUSNESS [None]
  - TOOTH FRACTURE [None]
